FAERS Safety Report 5614080-9 (Version None)
Quarter: 2008Q1

REPORT INFORMATION
  Report Type: 
  Country: None (occurrence: None)
  Receive Date: 20080130
  Receipt Date: 20080114
  Transmission Date: 20080703
  Serious: Yes (Hospitalization)
  Sender: FDA-Public Use
  Company Number: DSA_31352_2008

PATIENT
  Sex: Female

DRUGS (6)
  1. MONO-TILDIEM (MONO-TILDIEM - DILTIAZEM HYDROCHLORIDE) 200 MG (NOT SPEC [Suspect]
     Indication: HYPERTENSION
     Dosage: (200 MG QD ORAL)
     Route: 048
  2. KARDEGIC /00002703/ (KARDEGIC - ACETYLSALICYLATE LYSINE) 160 MG (NOT S [Suspect]
     Indication: CEREBROVASCULAR ACCIDENT
     Dosage: (160 MG QD ORAL), (75 MG QD ORAL)
     Route: 048
  3. COVERSYL /00790701/ (COVERSYL - PERINDOPRIL) [Suspect]
     Indication: HYPERTENSION
     Dosage: (2 MG ORAL)
     Route: 048
  4. HYPERIUM /00939801/ (HYPERIUM - RILMENIDINE) [Suspect]
     Indication: HYPERTENSION
     Dosage: (1 MG ORAL)
     Route: 048
  5. INEXIUM /01479302/ [Concomitant]
  6. DITROPAN /00538901/ [Concomitant]

REACTIONS (5)
  - FALL [None]
  - HYPOTENSION [None]
  - MALAISE [None]
  - MICROCYTIC ANAEMIA [None]
  - REFUSAL OF TREATMENT BY PATIENT [None]
